FAERS Safety Report 19680537 (Version 2)
Quarter: 2022Q1

REPORT INFORMATION
  Report Type: Spontaneous
  Country: US (occurrence: US)
  Receive Date: 20210810
  Receipt Date: 20220106
  Transmission Date: 20220424
  Serious: Yes (Hospitalization, Other)
  Sender: FDA-Public Use
  Company Number: US-PURDUE-USA-2021-0280818

PATIENT
  Sex: Female
  Weight: 80.7 kg

DRUGS (8)
  1. OXYCODONE HYDROCHLORIDE [Suspect]
     Active Substance: OXYCODONE HYDROCHLORIDE
     Indication: Product used for unknown indication
     Dosage: UNKNOWN
     Route: 065
     Dates: start: 20211226
  2. HYDROCODONE BITARTRATE [Suspect]
     Active Substance: HYDROCODONE BITARTRATE
     Indication: Tooth extraction
     Dosage: UNK
     Route: 048
     Dates: start: 202107
  3. DILAUDID [Concomitant]
     Active Substance: HYDROMORPHONE HYDROCHLORIDE
     Indication: Product used for unknown indication
     Route: 048
  4. TYVASO [Suspect]
     Active Substance: TREPROSTINIL
     Indication: Pulmonary arterial hypertension
     Dosage: UNK
     Route: 055
     Dates: start: 20210113
  5. TYVASO [Suspect]
     Active Substance: TREPROSTINIL
     Dosage: 18-54 MCG, QID
     Route: 055
     Dates: start: 2021
  6. TYVASO [Suspect]
     Active Substance: TREPROSTINIL
     Dosage: UNK
     Route: 055
     Dates: start: 2021
  7. ZOFRAN                             /00955301/ [Concomitant]
     Indication: Product used for unknown indication
     Route: 065
  8. DILTIAZEM [Concomitant]
     Active Substance: DILTIAZEM
     Indication: Product used for unknown indication
     Route: 065

REACTIONS (28)
  - Pericardial effusion [Unknown]
  - Hypotension [Unknown]
  - Atrial fibrillation [Unknown]
  - Chest discomfort [Unknown]
  - Ascites [Unknown]
  - Hypoxia [Unknown]
  - Tooth extraction [Unknown]
  - Tooth infection [Unknown]
  - Toothache [Unknown]
  - Dental caries [Unknown]
  - Taste disorder [Unknown]
  - Sinus congestion [Unknown]
  - Ocular hyperaemia [Unknown]
  - Ear congestion [Unknown]
  - Throat tightness [Unknown]
  - Sputum discoloured [Unknown]
  - Productive cough [Unknown]
  - Nasal congestion [Unknown]
  - Pyrexia [Unknown]
  - Drug hypersensitivity [Unknown]
  - Heart rate irregular [Unknown]
  - Dyspnoea [Unknown]
  - Cough [Unknown]
  - Rhinorrhoea [Unknown]
  - Wheezing [Not Recovered/Not Resolved]
  - Rales [Not Recovered/Not Resolved]
  - Dizziness [Unknown]
  - Ear discomfort [Unknown]

NARRATIVE: CASE EVENT DATE: 20210101
